FAERS Safety Report 9792076 (Version 1)
Quarter: 2013Q4

REPORT INFORMATION
  Report Type: Spontaneous
  Country: US (occurrence: None)
  Receive Date: 20131230
  Receipt Date: 20131230
  Transmission Date: 20140711
  Serious: Yes (Other)
  Sender: FDA-Public Use
  Company Number: 2013HINOTH0330

PATIENT
  Age: 38 Year
  Sex: Female

DRUGS (5)
  1. ZIDOVUDINE (ZIDOVUDINE) [Suspect]
     Indication: ANTIVIRAL TREATMENT
     Route: 048
     Dates: end: 20080401
  2. TRUVODO (TCNOFOVIR DISOPROXIL FUMARATE+EMTRICITABINO) [Concomitant]
  3. ROYATAZ (ATAZANAVIR CULFATE) [Concomitant]
  4. NORVIR (RITONAVIR) [Concomitant]
  5. RETROVIR (ZIDOVUDINE) [Concomitant]

REACTIONS (3)
  - Hydrocephalus [None]
  - Cardiac disorder [None]
  - Maternal exposure during pregnancy [None]
